FAERS Safety Report 7842304-6 (Version None)
Quarter: 2011Q4

REPORT INFORMATION
  Report Type: 
  Country: None (occurrence: None)
  Receive Date: 20111025
  Receipt Date: 20111020
  Transmission Date: 20120403
  Serious: Yes (Other)
  Sender: FDA-Public Use
  Company Number: JP-B.I. PHARMACEUTICALS,INC./RIDGEFIELD-2011-BP-24651NB

PATIENT
  Age: 80 Year
  Sex: Female
  Weight: 70 kg

DRUGS (2)
  1. GEMZAR [Concomitant]
     Indication: PANCREATIC CARCINOMA
     Route: 042
     Dates: start: 20110501, end: 20111001
  2. PRADAXA [Suspect]
     Indication: ATRIAL FIBRILLATION
     Dosage: 75 MG
     Route: 048
     Dates: start: 20110401

REACTIONS (3)
  - DISEASE PROGRESSION [None]
  - ANAEMIA [None]
  - HAEMORRHOIDAL HAEMORRHAGE [None]
